FAERS Safety Report 9455962 (Version 2)
Quarter: 2013Q3

REPORT INFORMATION
  Report Type: Report from Study
  Country: US (occurrence: US)
  Receive Date: 20130813
  Receipt Date: 20130830
  Transmission Date: 20140515
  Serious: Yes (Hospitalization)
  Sender: FDA-Public Use
  Company Number: US-EISAI INC-E2007-00847-CLI-US

PATIENT
  Age: 15 Year
  Sex: Female
  Weight: 43.7 kg

DRUGS (15)
  1. E2007 (PERAMPANEL) [Suspect]
     Indication: PARTIAL SEIZURES
     Dosage: DOUBLE BLIND CONVERSION PHASE
     Route: 048
     Dates: start: 20100210, end: 20100608
  2. E2007 (PERAMPANEL) [Suspect]
     Route: 048
     Dates: start: 20100609, end: 20110819
  3. E2007 (PERAMPANEL) [Suspect]
     Dosage: 16MG (8 MG IN AM -8 MG IN PM)
     Route: 048
     Dates: start: 20110820, end: 20110821
  4. E2007 (PERAMPANEL) [Suspect]
     Route: 048
     Dates: start: 20110822, end: 20110831
  5. E2007 (PERAMPANEL) [Suspect]
     Dosage: 16MG (8 MG IN AM -8 MG IN PM)
     Route: 048
     Dates: start: 20110901, end: 20110902
  6. E2007 (PERAMPANEL) [Suspect]
     Route: 048
     Dates: start: 20110903, end: 20110910
  7. E2007 (PERAMPANEL) [Suspect]
     Dosage: 16MG (8 MG IN AM -8 MG IN PM)
     Route: 048
     Dates: start: 20110911, end: 20110912
  8. E2007 (PERAMPANEL) [Suspect]
     Route: 048
     Dates: start: 20110913, end: 20130801
  9. E2007 (PERAMPANEL) [Suspect]
     Route: 048
     Dates: start: 20130802
  10. DIASTAT [Concomitant]
  11. NORETHINDRONE ETHINYL ESTRADIOL [Concomitant]
  12. POLYETHYLENE GLYCOL [Concomitant]
  13. CITRIZONE [Concomitant]
  14. CARBAMAZEPINE [Concomitant]
  15. CARBATROL [Concomitant]
     Indication: EPILEPSY
     Route: 048

REACTIONS (15)
  - Epilepsy [Recovering/Resolving]
  - Accidental overdose [Recovered/Resolved]
  - Accidental overdose [Recovered/Resolved]
  - Hypoaesthesia [Recovered/Resolved]
  - Hypoaesthesia [Recovered/Resolved]
  - Headache [Recovered/Resolved]
  - Coordination abnormal [Recovered/Resolved]
  - Accidental overdose [Recovered/Resolved]
  - Hypoaesthesia [Recovered/Resolved]
  - Hypoaesthesia [Recovered/Resolved]
  - Hypoaesthesia [Recovered/Resolved]
  - Hypoaesthesia [Recovered/Resolved]
  - Hypoaesthesia [Recovered/Resolved]
  - Hypoaesthesia [Recovered/Resolved]
  - Dizziness [Recovered/Resolved]
